FAERS Safety Report 9677453 (Version 2)
Quarter: 2013Q4

REPORT INFORMATION
  Report Type: Report from Study
  Country: DE (occurrence: DE)
  Receive Date: 20131108
  Receipt Date: 20131108
  Transmission Date: 20140711
  Serious: Yes (Death, Other)
  Sender: FDA-Public Use
  Company Number: DE-ROCHE-1285573

PATIENT
  Sex: Female
  Weight: 54 kg

DRUGS (6)
  1. METHOXY POLYETHYLENE GLYCOL-EPOETIN BETA [Suspect]
     Indication: NEPHROGENIC ANAEMIA
     Route: 065
  2. CAPTOPRIL [Concomitant]
     Indication: HYPERTENSION
     Route: 048
  3. MOXONIDIN [Concomitant]
     Indication: HYPERTENSION
     Route: 048
  4. CORIFEO [Concomitant]
     Indication: HYPERTENSION
     Route: 048
  5. NEBIVOLOL [Concomitant]
     Indication: HYPERTENSION
     Route: 048
  6. TORASEMIDE [Concomitant]
     Indication: RENAL FAILURE
     Route: 048

REACTIONS (2)
  - Death [Fatal]
  - Peripheral arterial occlusive disease [Unknown]
